FAERS Safety Report 9996418 (Version 1)
Quarter: 2014Q1

REPORT INFORMATION
  Report Type: Spontaneous
  Country: TR (occurrence: TR)
  Receive Date: 20140311
  Receipt Date: 20140311
  Transmission Date: 20141002
  Serious: Yes (Hospitalization)
  Sender: FDA-Public Use
  Company Number: PHHY2014TR026342

PATIENT
  Sex: Male
  Weight: 100 kg

DRUGS (4)
  1. DIGOXIN [Suspect]
     Dosage: 5 MG, DAILY
     Route: 048
  2. CORDARONE [Concomitant]
     Dosage: UNK UKN, UNK
  3. BELOC [Concomitant]
     Dosage: UNK UKN, UNK
  4. CARDURA [Concomitant]
     Dosage: UNK UKN, UNK

REACTIONS (9)
  - Lung infection [Unknown]
  - Dyspnoea [Unknown]
  - Fatigue [Unknown]
  - General physical condition abnormal [Unknown]
  - Monoplegia [Unknown]
  - Blindness [Unknown]
  - Epistaxis [Unknown]
  - Nasopharyngitis [Unknown]
  - Blood urine present [Unknown]
